FAERS Safety Report 6637811-8 (Version None)
Quarter: 2010Q1

REPORT INFORMATION
  Report Type: 
  Country: None (occurrence: None)
  Receive Date: 20100317
  Receipt Date: 20100302
  Transmission Date: 20100710
  Serious: Yes (Hospitalization, Other)
  Sender: FDA-Public Use
  Company Number: PHHY2010TW11932

PATIENT
  Age: 33 Year
  Sex: Female

DRUGS (10)
  1. OXCARBAZEPINE [Suspect]
     Dosage: UNK
  2. OXCARBAZEPINE [Suspect]
     Dosage: 600 MG/DAY
  3. CLONAZEPAM [Concomitant]
     Dosage: 0.5 MG/DAY
  4. LITHIUM CARBONATE [Concomitant]
     Dosage: UNK
  5. LITHIUM CARBONATE [Concomitant]
     Dosage: 600 MG/DAY
  6. LITHIUM CARBONATE [Concomitant]
     Dosage: 900 MG, DAILY
  7. VALPROAT [Concomitant]
     Indication: MANIA
     Dosage: UNK
  8. RISPERIDONE [Concomitant]
     Indication: MANIA
     Dosage: UNK
  9. QUETIAPINE [Concomitant]
     Dosage: UNK
  10. ATYPICAL ANTIPSYCHOTICS [Concomitant]
     Dosage: UNK

REACTIONS (13)
  - ACNE [None]
  - AFFECT LABILITY [None]
  - BIPOLAR I DISORDER [None]
  - HAEMATOTOXICITY [None]
  - INSOMNIA [None]
  - LOGORRHOEA [None]
  - MANIA [None]
  - NEUTROPENIA [None]
  - PSYCHOMOTOR HYPERACTIVITY [None]
  - TREATMENT NONCOMPLIANCE [None]
  - TYPE IV HYPERSENSITIVITY REACTION [None]
  - WEIGHT INCREASED [None]
  - WHITE BLOOD CELL COUNT DECREASED [None]
